FAERS Safety Report 24626666 (Version 2)
Quarter: 2024Q4

REPORT INFORMATION
  Report Type: Spontaneous
  Country: MX (occurrence: MX)
  Receive Date: 20241115
  Receipt Date: 20241210
  Transmission Date: 20250114
  Serious: Yes (Death, Other)
  Sender: MERCK
  Company Number: MX-009507513-2411MEX005374

PATIENT
  Age: 60 Year
  Sex: Female

DRUGS (2)
  1. PEMBROLIZUMAB [Suspect]
     Active Substance: PEMBROLIZUMAB
     Indication: Triple negative breast cancer
     Dosage: 200 MILLIGRAM, Q3W
     Route: 042
  2. PACLITAXEL [Suspect]
     Active Substance: PACLITAXEL
     Indication: Triple negative breast cancer
     Dosage: 90 MILLIGRAM PER CUBIC METRE ON DAYS 1, 8 AND 15

REACTIONS (3)
  - Malignant neoplasm progression [Fatal]
  - Blindness [Unknown]
  - Episcleritis [Unknown]
